FAERS Safety Report 7338407-5 (Version None)
Quarter: 2011Q1

REPORT INFORMATION
  Report Type: 
  Country: None (occurrence: None)
  Receive Date: 20110308
  Receipt Date: 20110301
  Transmission Date: 20110831
  Serious: Yes (Other)
  Sender: FDA-Public Use
  Company Number: US-BRISTOL-MYERS SQUIBB COMPANY-15579261

PATIENT
  Age: 68 Year
  Sex: Female

DRUGS (2)
  1. PACLITAXEL [Interacting]
     Indication: BREAST CANCER
  2. COUMADIN [Suspect]
     Indication: ATRIAL FIBRILLATION
     Dosage: FOR YEARS

REACTIONS (3)
  - FATIGUE [None]
  - BREAST CANCER [None]
  - DRUG INTERACTION [None]
